FAERS Safety Report 8827918 (Version 1)
Quarter: 2012Q4

REPORT INFORMATION
  Report Type: Report from Study
  Country: CA (occurrence: CA)
  Receive Date: 20121008
  Receipt Date: 20121008
  Transmission Date: 20130627
  Serious: Yes (Other)
  Sender: FDA-Public Use
  Company Number: CA-JNJFOC-20120912679

PATIENT
  Age: 42 Year
  Sex: Female
  Weight: 80.9 kg

DRUGS (4)
  1. REMICADE [Suspect]
     Indication: COLITIS
     Route: 042
     Dates: start: 20120301
  2. METHOTREXATE [Concomitant]
     Route: 065
  3. CORTIFOAM [Concomitant]
     Route: 065
  4. CODEINE [Concomitant]
     Route: 065

REACTIONS (1)
  - Mass [Unknown]
